FAERS Safety Report 14208351 (Version 1)
Quarter: 2017Q4

REPORT INFORMATION
  Report Type: Spontaneous
  Country: FR (occurrence: FR)
  Receive Date: 20171121
  Receipt Date: 20171121
  Transmission Date: 20180321
  Serious: Yes (Other)
  Sender: FDA-Public Use
  Company Number: FR-SA-2017SA226193

PATIENT
  Age: 70 Year
  Sex: Female

DRUGS (6)
  1. RIFINAH [Suspect]
     Active Substance: ISONIAZID\RIFAMPIN
     Indication: ANTIBIOTIC PROPHYLAXIS
     Route: 048
     Dates: start: 20161202, end: 20170228
  2. LEVOTHYROX [Concomitant]
     Active Substance: LEVOTHYROXINE
     Dosage: LONG COURSE, 135  UG  (11 IN 1 DAY)
     Route: 048
  3. ESIDREX [Concomitant]
     Active Substance: HYDROCHLOROTHIAZIDE
     Route: 048
  4. RIFADINE [Suspect]
     Active Substance: RIFAMPIN
     Route: 048
     Dates: start: 20161202, end: 20170228
  5. RIMIFON [Suspect]
     Active Substance: ISONIAZID
     Indication: ANTIBIOTIC PROPHYLAXIS
     Route: 048
     Dates: start: 20161202, end: 20170228
  6. ROACTEMRA [Concomitant]
     Active Substance: TOCILIZUMAB
     Indication: POLYARTHRITIS
     Route: 058
     Dates: start: 201612

REACTIONS (1)
  - Deafness bilateral [Not Recovered/Not Resolved]

NARRATIVE: CASE EVENT DATE: 201701
